FAERS Safety Report 9596262 (Version 1)
Quarter: 2013Q4

REPORT INFORMATION
  Report Type: Spontaneous
  Country: US (occurrence: US)
  Receive Date: 20131004
  Receipt Date: 20131004
  Transmission Date: 20140711
  Serious: No
  Sender: FDA-Public Use
  Company Number: US-BAYER-2013-118745

PATIENT
  Age: 9 Year
  Sex: Male

DRUGS (1)
  1. GADAVIST [Suspect]
     Dosage: 4.5 ML, ONCE
     Dates: start: 20130930, end: 20130930

REACTIONS (1)
  - Drug effect delayed [None]
